FAERS Safety Report 21723785 (Version 1)
Quarter: 2022Q4

REPORT INFORMATION
  Report Type: Spontaneous
  Country: None (occurrence: RU)
  Receive Date: 20221213
  Receipt Date: 20221213
  Transmission Date: 20230112
  Serious: Yes (Other)
  Sender: FDA-Public Use
  Company Number: RU-Ascend Therapeutics US, LLC-2135835

PATIENT
  Age: 46 Year
  Sex: Female

DRUGS (4)
  1. ESTROGEL [Suspect]
     Active Substance: ESTRADIOL
     Indication: Hormone replacement therapy
     Route: 062
  2. ESTROGEL [Suspect]
     Active Substance: ESTRADIOL
  3. ESTRADIOL [Suspect]
     Active Substance: ESTRADIOL
     Route: 062
  4. DIVIGEL [Suspect]
     Active Substance: ESTRADIOL
     Route: 065

REACTIONS (7)
  - Cholestasis [Recovered/Resolved]
  - Vulvovaginal dryness [Recovered/Resolved]
  - Decreased appetite [Unknown]
  - Abdominal discomfort [Unknown]
  - Dysgeusia [Unknown]
  - Paraesthesia [Unknown]
  - Weight decreased [Unknown]
